FAERS Safety Report 21784945 (Version 5)
Quarter: 2023Q1

REPORT INFORMATION
  Report Type: Report from Study
  Country: US (occurrence: None)
  Receive Date: 20221227
  Receipt Date: 20230329
  Transmission Date: 20230417
  Serious: Yes (Hospitalization)
  Sender: FDA-Public Use
  Company Number: US-Eisai Medical Research-EC-2022-130765

PATIENT
  Age: 73 Year
  Sex: Female
  Weight: 80.9 kg

DRUGS (26)
  1. LENVATINIB [Suspect]
     Active Substance: LENVATINIB
     Indication: Ovarian cancer
     Route: 048
     Dates: start: 20221202, end: 20221205
  2. LENVATINIB [Suspect]
     Active Substance: LENVATINIB
     Route: 048
     Dates: start: 20221208, end: 20221219
  3. ACETAMINOPHEN\HYDROCODONE [Concomitant]
     Active Substance: ACETAMINOPHEN\HYDROCODONE
  4. ACETAMINOPHEN [Concomitant]
     Active Substance: ACETAMINOPHEN
  5. FLUTICASONE PROPIONATE [Concomitant]
     Active Substance: FLUTICASONE PROPIONATE
  6. INSULIN LISPRO [Concomitant]
     Active Substance: INSULIN LISPRO
  7. GABAPENTIN [Concomitant]
     Active Substance: GABAPENTIN
  8. AMILORIDE [Concomitant]
     Active Substance: AMILORIDE
  9. APIXABAN [Concomitant]
     Active Substance: APIXABAN
  10. BISOPROLOL [Concomitant]
     Active Substance: BISOPROLOL
  11. CETIRIZINE [Concomitant]
     Active Substance: CETIRIZINE HYDROCHLORIDE
  12. DOCUSATE SODIUM [Concomitant]
     Active Substance: DOCUSATE SODIUM
  13. FLUTICASONE [Concomitant]
     Active Substance: FLUTICASONE
  14. HYDROCHLOROTHIAZIDE [Concomitant]
     Active Substance: HYDROCHLOROTHIAZIDE
  15. LOSARTAN [Concomitant]
     Active Substance: LOSARTAN
  16. MAGNESIUM OXIDE [Concomitant]
     Active Substance: MAGNESIUM OXIDE
  17. METFORMIN [Concomitant]
     Active Substance: METFORMIN HYDROCHLORIDE
  18. MIRTAZAPINE [Concomitant]
     Active Substance: MIRTAZAPINE
  19. VITAMINS [Concomitant]
     Active Substance: VITAMINS
  20. ONDANSETRON [Concomitant]
     Active Substance: ONDANSETRON
  21. OXYCODONE [Concomitant]
     Active Substance: OXYCODONE
  22. PANTOPRAZOLE [Concomitant]
     Active Substance: PANTOPRAZOLE
  23. PROCHLORPERAZINE [Concomitant]
     Active Substance: PROCHLORPERAZINE
  24. PYRIDOXINE [Concomitant]
     Active Substance: PYRIDOXINE
  25. SIMVASTATIN [Concomitant]
     Active Substance: SIMVASTATIN
  26. TRAMADOL [Concomitant]
     Active Substance: TRAMADOL

REACTIONS (3)
  - Hyponatraemia [Unknown]
  - Gastrointestinal haemorrhage [Unknown]
  - Biliary obstruction [Unknown]

NARRATIVE: CASE EVENT DATE: 20221217
